FAERS Safety Report 22303804 (Version 1)
Quarter: 2023Q2

REPORT INFORMATION
  Report Type: Spontaneous
  Country: US (occurrence: US)
  Receive Date: 20230510
  Receipt Date: 20230510
  Transmission Date: 20230722
  Serious: Yes (Other)
  Sender: FDA-Public Use
  Company Number: US-SUN PHARMACEUTICAL INDUSTRIES LTD-2023R1-387354

PATIENT
  Age: 66 Year
  Sex: Female

DRUGS (2)
  1. VENLAFAXINE [Suspect]
     Active Substance: VENLAFAXINE HYDROCHLORIDE
     Indication: Autoimmune thyroiditis
     Dosage: 225 MILLIGRAM, DAILY
     Route: 065
  2. VENLAFAXINE [Suspect]
     Active Substance: VENLAFAXINE HYDROCHLORIDE
     Dosage: 155 MILLIGRAM, DAILY
     Route: 065

REACTIONS (3)
  - Therapy change [Unknown]
  - Ventricular extrasystoles [Unknown]
  - Ventricular tachycardia [Unknown]
